FAERS Safety Report 25199886 (Version 2)
Quarter: 2025Q2

REPORT INFORMATION
  Report Type: Spontaneous
  Country: US (occurrence: US)
  Receive Date: 20250415
  Receipt Date: 20250421
  Transmission Date: 20250716
  Serious: Yes (Life-Threatening, Hospitalization)
  Sender: ABBVIE
  Company Number: US-MLMSERVICE-20250331-PI461567-00102-1

PATIENT
  Age: 60 Year

DRUGS (1)
  1. CITALOPRAM [Suspect]
     Active Substance: CITALOPRAM
     Indication: Product used for unknown indication
     Route: 065

REACTIONS (7)
  - Intestinal pseudo-obstruction [Recovered/Resolved]
  - Suicide attempt [Recovering/Resolving]
  - Myoclonus [Unknown]
  - Fall [Unknown]
  - Musculoskeletal chest pain [Unknown]
  - Intentional overdose [Recovering/Resolving]
  - Respiratory distress [Unknown]
